FAERS Safety Report 8434324-8 (Version None)
Quarter: 2012Q2

REPORT INFORMATION
  Report Type: 
  Country: None (occurrence: None)
  Receive Date: 20120613
  Receipt Date: 20120611
  Transmission Date: 20120825
  Serious: Yes (Other)
  Sender: FDA-Public Use
  Company Number: FR-FRI-1000031312

PATIENT
  Sex: Male

DRUGS (1)
  1. NEBIVOLOL [Suspect]

REACTIONS (1)
  - SJOGREN'S SYNDROME [None]
